FAERS Safety Report 15718294 (Version 1)
Quarter: 2018Q4

REPORT INFORMATION
  Report Type: Spontaneous
  Country: US (occurrence: US)
  Receive Date: 20181213
  Receipt Date: 20181213
  Transmission Date: 20190205
  Serious: No
  Sender: FDA-Public Use
  Company Number: US-ASTELLAS-2018US039364

PATIENT
  Age: 66 Year
  Sex: Male

DRUGS (1)
  1. TARCEVA [Suspect]
     Active Substance: ERLOTINIB HYDROCHLORIDE
     Indication: NON-SMALL CELL LUNG CANCER
     Dosage: 150 MG, ONCE DAILY TAKEN ON AN EMPTY STOMACH
     Route: 048
     Dates: start: 201708

REACTIONS (2)
  - Onychoclasis [Recovering/Resolving]
  - Nail infection [Recovering/Resolving]

NARRATIVE: CASE EVENT DATE: 201712
